FAERS Safety Report 7179540-0 (Version None)
Quarter: 2010Q4

REPORT INFORMATION
  Report Type: 
  Country: None (occurrence: None)
  Receive Date: 20101221
  Receipt Date: 20101216
  Transmission Date: 20110411
  Serious: Yes (Other)
  Sender: FDA-Public Use
  Company Number: US-AMGEN-USASP2010010023

PATIENT

DRUGS (2)
  1. ARANESP [Suspect]
     Dates: start: 20080101
  2. ARANESP [Suspect]
     Dosage: 150 A?G, UNK

REACTIONS (5)
  - APLASIA PURE RED CELL [None]
  - CONDITION AGGRAVATED [None]
  - DRUG INEFFECTIVE [None]
  - MYELODYSPLASTIC SYNDROME [None]
  - WEIGHT DECREASED [None]
